FAERS Safety Report 13108986 (Version 1)
Quarter: 2017Q1

REPORT INFORMATION
  Report Type: Spontaneous
  Country: US (occurrence: US)
  Receive Date: 20170112
  Receipt Date: 20170112
  Transmission Date: 20170428
  Serious: No
  Sender: FDA-Public Use
  Company Number: US-LANTHEUS-LMI-2016-04012

PATIENT
  Age: 70 Year
  Sex: Female

DRUGS (1)
  1. CARDIOLITE [Suspect]
     Active Substance: TECHNETIUM TC-99M SESTAMIBI
     Indication: SCAN PARATHYROID
     Dosage: UNK
     Route: 042
     Dates: start: 20160829, end: 20160829

REACTIONS (6)
  - Swelling face [Recovering/Resolving]
  - Lethargy [Recovered/Resolved]
  - Gingival pain [Recovering/Resolving]
  - Eye irritation [Recovering/Resolving]
  - Headache [Recovering/Resolving]
  - Glossodynia [Recovering/Resolving]

NARRATIVE: CASE EVENT DATE: 20160830
